FAERS Safety Report 16225301 (Version 3)
Quarter: 2019Q3

REPORT INFORMATION
  Report Type: Spontaneous
  Country: UA (occurrence: UA)
  Receive Date: 20190422
  Receipt Date: 20190702
  Transmission Date: 20191004
  Serious: Yes (Death, Life-Threatening)
  Sender: FDA-Public Use
  Company Number: UA-SA-2019SA109446

PATIENT
  Sex: Male

DRUGS (2)
  1. PLAVIX [Suspect]
     Active Substance: CLOPIDOGREL BISULFATE
     Indication: VASCULAR STENT THROMBOSIS
     Dosage: 300 MG, (ONCE A DAY FOR 2 DAYS NEXT DOSES ARE UNKNOWN)
     Route: 048
     Dates: start: 20190413, end: 20190418
  2. BRILINTA [Concomitant]
     Active Substance: TICAGRELOR
     Indication: VASCULAR STENT THROMBOSIS
     Route: 048

REACTIONS (2)
  - Acute coronary syndrome [Unknown]
  - Vascular stent thrombosis [Fatal]

NARRATIVE: CASE EVENT DATE: 20190418
